FAERS Safety Report 16628457 (Version 1)
Quarter: 2019Q3

REPORT INFORMATION
  Report Type: Spontaneous
  Country: US (occurrence: US)
  Receive Date: 20190612
  Receipt Date: 20190612
  Transmission Date: 20191004
  Serious: No
  Sender: FDA-Public Use
  Company Number: None

PATIENT
  Age: 28 Year
  Sex: Female
  Weight: 116.12 kg

DRUGS (1)
  1. INFLECTRA [Suspect]
     Active Substance: INFLIXIMAB-DYYB
     Indication: ANKYLOSING SPONDYLITIS
     Dosage: INFUSE 580MG INTRAVENOUSLY EVERY 6 WEEKS AS DIRECTED
     Route: 042
     Dates: start: 201812

REACTIONS (2)
  - Chest pain [None]
  - Oesophageal disorder [None]
